FAERS Safety Report 21106857 (Version 1)
Quarter: 2022Q3

REPORT INFORMATION
  Report Type: Spontaneous
  Country: US (occurrence: None)
  Receive Date: 20220720
  Receipt Date: 20220720
  Transmission Date: 20221027
  Serious: Yes (Life-Threatening)
  Sender: FDA-Public Use
  Company Number: None

PATIENT
  Age: 24 Year
  Sex: Male
  Weight: 69.75 kg

DRUGS (3)
  1. MONTELUKAST [Suspect]
     Active Substance: MONTELUKAST SODIUM
     Indication: Asthma
     Dosage: FREQUENCY : AT BEDTIME;?
     Route: 048
  2. ALBUTEROL [Concomitant]
     Active Substance: ALBUTEROL
  3. MONTELUKAST [Concomitant]
     Active Substance: MONTELUKAST SODIUM

REACTIONS (17)
  - Night sweats [None]
  - Loss of employment [None]
  - Abnormal behaviour [None]
  - Anxiety [None]
  - Heart rate increased [None]
  - Hyperhidrosis [None]
  - Paranoia [None]
  - Aggression [None]
  - Emotional disorder [None]
  - Anger [None]
  - Abdominal pain upper [None]
  - Cough [None]
  - Vomiting [None]
  - Nausea [None]
  - Tremor [None]
  - Tremor [None]
  - Musculoskeletal stiffness [None]

NARRATIVE: CASE EVENT DATE: 20220716
